FAERS Safety Report 6096874-1 (Version None)
Quarter: 2009Q1

REPORT INFORMATION
  Report Type: 
  Country: None (occurrence: None)
  Receive Date: 20090225
  Receipt Date: 20090225
  Transmission Date: 20090719
  Serious: No
  Sender: FDA-Public Use
  Company Number: None

PATIENT

DRUGS (2)
  1. LEVAQUIN [Suspect]
     Indication: BRONCHITIS
     Dosage: 500MG QDAY PO
     Route: 048
     Dates: start: 20090119
  2. LEVAQUIN [Suspect]
     Indication: PNEUMONIA
     Dosage: 500MG QDAY PO
     Route: 048
     Dates: start: 20090119

REACTIONS (1)
  - TENDONITIS [None]
